FAERS Safety Report 13653549 (Version 1)
Quarter: 2017Q2

REPORT INFORMATION
  Report Type: Spontaneous
  Country: US (occurrence: US)
  Receive Date: 20170614
  Receipt Date: 20170614
  Transmission Date: 20170830
  Serious: No
  Sender: FDA-Public Use
  Company Number: US-ROCHE-1323233

PATIENT
  Sex: Male

DRUGS (7)
  1. XELODA [Suspect]
     Active Substance: CAPECITABINE
     Indication: RECTAL CANCER
     Dosage: 14 DAYS ON THEN 7 DAYS OFF
     Route: 048
     Dates: start: 20130726
  2. ATORVASTATIN [Concomitant]
     Active Substance: ATORVASTATIN
  3. LISINOPRIL. [Concomitant]
     Active Substance: LISINOPRIL
  4. CLOPIDOGREL [Concomitant]
     Active Substance: CLOPIDOGREL BISULFATE
  5. XELODA [Suspect]
     Active Substance: CAPECITABINE
     Route: 048
     Dates: start: 20130821
  6. ASPIRIN. [Concomitant]
     Active Substance: ASPIRIN
  7. NITROSTAT [Concomitant]
     Active Substance: NITROGLYCERIN

REACTIONS (2)
  - Skin discolouration [Unknown]
  - Pain in extremity [Unknown]
